FAERS Safety Report 6665167-3 (Version None)
Quarter: 2010Q2

REPORT INFORMATION
  Report Type: 
  Country: None (occurrence: None)
  Receive Date: 20100402
  Receipt Date: 20100324
  Transmission Date: 20101027
  Serious: Yes (Hospitalization)
  Sender: FDA-Public Use
  Company Number: JP-BRISTOL-MYERS SQUIBB COMPANY-15040181

PATIENT
  Age: 52 Year
  Sex: Male

DRUGS (3)
  1. BRIPLATIN [Suspect]
     Indication: GASTRIC CANCER
     Dosage: ON DAY 1 EVERY 5 WEEKS
     Route: 041
  2. TS-1 [Suspect]
     Indication: GASTRIC CANCER
     Dosage: DAY 1-21 EVERY 5 WEEKS
  3. TAXOTERE [Suspect]
     Indication: GASTRIC CANCER
     Dosage: INJ LEVE1/2/3:20/25/30 MG/M2 ON DAY 1,8 AND 15 EVERY 5 WEEKS LEVEL4:40MG/M2 FROM DAY 1-15.
     Route: 042

REACTIONS (1)
  - ABDOMINAL PAIN [None]
